FAERS Safety Report 15616952 (Version 2)
Quarter: 2019Q1

REPORT INFORMATION
  Report Type: Report from Study
  Country: IT (occurrence: IT)
  Receive Date: 20181114
  Receipt Date: 20190117
  Transmission Date: 20190417
  Serious: Yes (Other)
  Sender: FDA-Public Use
  Company Number: IT-PFIZER INC-2018462160

PATIENT
  Age: 90 Year
  Sex: Female

DRUGS (7)
  1. METFORMIN [Concomitant]
     Active Substance: METFORMIN HYDROCHLORIDE
     Indication: DIABETES MELLITUS
  2. MIRTAZAPINA DOC [Suspect]
     Active Substance: MIRTAZAPINE
     Indication: DEPRESSION
     Dosage: 2 DF, 1X/DAY
     Route: 048
  3. DOXAZOSIN [Concomitant]
     Active Substance: DOXAZOSIN\DOXAZOSIN MESYLATE
     Indication: HYPERTENSION
  4. RAMIPRIL. [Concomitant]
     Active Substance: RAMIPRIL
     Indication: HYPERTENSION
  5. XANAX [Suspect]
     Active Substance: ALPRAZOLAM
     Indication: FEELING JITTERY
     Dosage: 70 GTT, 1X/DAY
     Route: 048
  6. SERPAX [Suspect]
     Active Substance: OXAZEPAM
     Indication: FEELING JITTERY
     Dosage: 3 DF, 1X/DAY
     Route: 048
  7. SOLOSA [Concomitant]
     Active Substance: GLIMEPIRIDE
     Indication: DIABETES MELLITUS
     Dosage: 1 DF, UNK
     Route: 048

REACTIONS (5)
  - Balance disorder [Recovering/Resolving]
  - Overdose [Recovering/Resolving]
  - Language disorder [Recovering/Resolving]
  - Dysarthria [Recovering/Resolving]
  - Asthenia [Recovering/Resolving]

NARRATIVE: CASE EVENT DATE: 20181005
